FAERS Safety Report 6695115-1 (Version None)
Quarter: 2010Q2

REPORT INFORMATION
  Report Type: 
  Country: None (occurrence: None)
  Receive Date: 20100423
  Receipt Date: 20100420
  Transmission Date: 20101027
  Serious: Yes (Death)
  Sender: FDA-Public Use
  Company Number: PHHY2010MX25062

PATIENT
  Sex: Female

DRUGS (1)
  1. ZOMETA [Suspect]
     Indication: NEOPLASM MALIGNANT
     Dosage: 1 APPLICATION (4 MG)  PER MONTH
     Route: 042

REACTIONS (2)
  - MULTIPLE MYELOMA [None]
  - PNEUMONIA [None]
